FAERS Safety Report 11403127 (Version 1)
Quarter: 2015Q3

REPORT INFORMATION
  Report Type: Spontaneous
  Country: US (occurrence: None)
  Receive Date: 20150820
  Receipt Date: 20150820
  Transmission Date: 20151125
  Serious: No
  Sender: FDA-Public Use
  Company Number: None

PATIENT
  Sex: Female

DRUGS (1)
  1. TOBRAMYCIN 300MG [Suspect]
     Active Substance: TOBRAMYCIN
     Dosage: 300MG BID NEB.??

REACTIONS (1)
  - No adverse event [None]
